FAERS Safety Report 21435130 (Version 3)
Quarter: 2022Q4

REPORT INFORMATION
  Report Type: Other
  Country: US (occurrence: None)
  Receive Date: 20221010
  Receipt Date: 20221026
  Transmission Date: 20230113
  Serious: No
  Sender: FDA-Public Use
  Company Number: US-ROCHE-3196571

PATIENT
  Age: 32 Year
  Sex: Male

DRUGS (10)
  1. OCREVUS [Suspect]
     Active Substance: OCRELIZUMAB
     Indication: Primary progressive multiple sclerosis
     Dosage: INFUSE 300 MG DAY ONE; THEN 300 MG DAY 15, INFUSE 600 MG EVERY 6 MONTHS, DOT: 10/FEB/2020, 17/AUG/20
     Route: 042
     Dates: start: 20200817
  2. MYRBETRIQ [Concomitant]
     Active Substance: MIRABEGRON
  3. FLOMAX (UNITED KINGDOM) [Concomitant]
  4. VIAGRA [Concomitant]
     Active Substance: SILDENAFIL CITRATE
  5. NEURONTIN [Concomitant]
     Active Substance: GABAPENTIN
  6. PEPCID [Concomitant]
     Active Substance: FAMOTIDINE
  7. AMPYRA [Concomitant]
     Active Substance: DALFAMPRIDINE
  8. ENABLEX [Concomitant]
     Active Substance: DARIFENACIN HYDROBROMIDE
  9. PERCOCET [Concomitant]
     Active Substance: ACETAMINOPHEN\OXYCODONE HYDROCHLORIDE
  10. ADDERALL [Concomitant]
     Active Substance: AMPHETAMINE ASPARTATE\AMPHETAMINE SULFATE\DEXTROAMPHETAMINE SACCHARATE\DEXTROAMPHETAMINE SULFATE

REACTIONS (1)
  - COVID-19 [Recovered/Resolved]

NARRATIVE: CASE EVENT DATE: 20220901
